FAERS Safety Report 11853023 (Version 2)
Quarter: 2015Q4

REPORT INFORMATION
  Report Type: Report from Study
  Country: US (occurrence: US)
  Receive Date: 20151218
  Receipt Date: 20151228
  Transmission Date: 20160305
  Serious: Yes (Hospitalization, Other)
  Sender: FDA-Public Use
  Company Number: PHHY2014US084645

PATIENT
  Age: 23 Year
  Sex: Female
  Weight: 102 kg

DRUGS (26)
  1. TACROLIMUS. [Suspect]
     Active Substance: TACROLIMUS
     Dosage: 6 MG, QD
     Route: 048
     Dates: start: 20140220, end: 20140410
  2. TACROLIMUS. [Suspect]
     Active Substance: TACROLIMUS
     Dosage: 10 MG, QD
     Route: 048
     Dates: start: 20140417, end: 20140417
  3. TACROLIMUS. [Suspect]
     Active Substance: TACROLIMUS
     Dosage: 7 MG, QD
     Route: 048
     Dates: start: 20140423, end: 20140506
  4. TACROLIMUS. [Suspect]
     Active Substance: TACROLIMUS
     Dosage: 6.5 MG, QD
     Route: 048
     Dates: start: 20140507, end: 20140507
  5. TACROLIMUS. [Suspect]
     Active Substance: TACROLIMUS
     Dosage: 4 MG, QD
     Route: 048
     Dates: start: 20140616, end: 20140616
  6. TACROLIMUS. [Suspect]
     Active Substance: TACROLIMUS
     Dosage: 3 MG, QD
     Route: 048
     Dates: start: 20140617, end: 20140910
  7. MYCOPHENOLATE MOFETIL. [Suspect]
     Active Substance: MYCOPHENOLATE MOFETIL
     Indication: RENAL TRANSPLANT
     Dosage: 500 MG, QID
     Route: 048
     Dates: start: 20130809, end: 20130813
  8. MYCELEX [Concomitant]
     Active Substance: CLOTRIMAZOLE
     Indication: PRODUCT USED FOR UNKNOWN INDICATION
     Dosage: UNK
     Route: 065
     Dates: start: 20141008
  9. TACROLIMUS. [Suspect]
     Active Substance: TACROLIMUS
     Dosage: 9 MG, QD
     Route: 048
     Dates: start: 20140418, end: 20140418
  10. TACROLIMUS. [Suspect]
     Active Substance: TACROLIMUS
     Dosage: 6 MG, QD
     Route: 048
     Dates: start: 20140508, end: 20140513
  11. SODIUM BICARBONATE. [Concomitant]
     Active Substance: SODIUM BICARBONATE
     Indication: PRODUCT USED FOR UNKNOWN INDICATION
     Dosage: UNK
     Route: 065
     Dates: start: 20141019
  12. TACROLIMUS. [Suspect]
     Active Substance: TACROLIMUS
     Dosage: 3 MG, QD
     Route: 048
     Dates: start: 20140412, end: 20140415
  13. TACROLIMUS. [Suspect]
     Active Substance: TACROLIMUS
     Dosage: 8 MG, QD
     Route: 048
     Dates: start: 20140416, end: 20140416
  14. MYFORTIC [Concomitant]
     Active Substance: MYCOPHENOLATE SODIUM
     Dosage: UNK
     Route: 065
     Dates: start: 20141011, end: 20150404
  15. PROTONIX [Concomitant]
     Active Substance: PANTOPRAZOLE SODIUM
     Indication: PRODUCT USED FOR UNKNOWN INDICATION
     Dosage: UNK
     Route: 065
     Dates: start: 20131022
  16. TACROLIMUS. [Suspect]
     Active Substance: TACROLIMUS
     Indication: RENAL TRANSPLANT
     Dosage: 2.5 MG, BID
     Route: 048
     Dates: start: 20130809, end: 20130809
  17. TACROLIMUS. [Suspect]
     Active Substance: TACROLIMUS
     Dosage: 6 MG, QD
     Route: 048
     Dates: start: 20140419, end: 20140421
  18. TACROLIMUS. [Suspect]
     Active Substance: TACROLIMUS
     Dosage: 5.5 MG, QD
     Route: 048
     Dates: start: 20140515, end: 20140615
  19. MYFORTIC [Concomitant]
     Active Substance: MYCOPHENOLATE SODIUM
     Indication: PRODUCT USED FOR UNKNOWN INDICATION
     Dosage: UNK
     Route: 065
     Dates: start: 20130813
  20. TACROLIMUS. [Suspect]
     Active Substance: TACROLIMUS
     Dosage: 4.5 MG, QD
     Route: 048
     Dates: start: 20140411, end: 20140411
  21. MYCOPHENOLATE MOFETIL. [Suspect]
     Active Substance: MYCOPHENOLATE MOFETIL
     Dosage: 360 MG, QID
     Route: 065
     Dates: start: 20140318
  22. SIMULECT [Suspect]
     Active Substance: BASILIXIMAB
     Indication: RENAL TRANSPLANT
     Dosage: 20 MG, BID
     Route: 042
     Dates: start: 20130808, end: 20130812
  23. TACROLIMUS. [Suspect]
     Active Substance: TACROLIMUS
     Dosage: 6.5 MG, QD
     Route: 048
     Dates: start: 20140514, end: 20140514
  24. PREDNISONE. [Concomitant]
     Active Substance: PREDNISONE
     Indication: PRODUCT USED FOR UNKNOWN INDICATION
     Dosage: UNK
     Route: 065
     Dates: start: 20141114, end: 20150406
  25. TACROLIMUS. [Suspect]
     Active Substance: TACROLIMUS
     Dosage: 6.5 MG, QD
     Route: 048
     Dates: start: 20140422, end: 20140422
  26. TACROLIMUS. [Suspect]
     Active Substance: TACROLIMUS
     Dosage: 3.5 MG, QD
     Route: 048
     Dates: start: 20140911

REACTIONS (8)
  - Vertigo [Recovered/Resolved]
  - Kidney transplant rejection [Recovered/Resolved]
  - Polyomavirus-associated nephropathy [Recovered/Resolved]
  - Headache [Recovered/Resolved]
  - Metabolic acidosis [Recovered/Resolved]
  - Kidney transplant rejection [Recovered/Resolved]
  - Polyomavirus-associated nephropathy [Recovered/Resolved]
  - Polyomavirus-associated nephropathy [Recovered/Resolved]

NARRATIVE: CASE EVENT DATE: 201310
